FAERS Safety Report 6062323-2 (Version None)
Quarter: 2009Q1

REPORT INFORMATION
  Report Type: 
  Country: None (occurrence: None)
  Receive Date: 20090203
  Receipt Date: 20090124
  Transmission Date: 20090719
  Serious: Yes (Other)
  Sender: FDA-Public Use
  Company Number: PHHY2009BR02757

PATIENT
  Age: 85 Year
  Sex: Female

DRUGS (1)
  1. TEGRETOL [Suspect]

REACTIONS (4)
  - HYPERTENSION [None]
  - SYNCOPE [None]
  - TINNITUS [None]
  - VISUAL ACUITY REDUCED [None]
